FAERS Safety Report 21387426 (Version 1)
Quarter: 2022Q3

REPORT INFORMATION
  Report Type: Spontaneous
  Country: CN (occurrence: CN)
  Receive Date: 20220928
  Receipt Date: 20220928
  Transmission Date: 20221027
  Serious: Yes (Hospitalization)
  Sender: FDA-Public Use
  Company Number: CN-BoehringerIngelheim-2022-BI-194248

PATIENT
  Age: 57 Year
  Sex: Male
  Weight: 56 kg

DRUGS (2)
  1. OFEV [Suspect]
     Active Substance: NINTEDANIB
     Indication: Drug therapy
     Route: 048
     Dates: start: 20220804, end: 20220818
  2. SAVOLITINIB [Suspect]
     Active Substance: SAVOLITINIB
     Indication: Targeted cancer therapy
     Route: 048
     Dates: start: 20220804, end: 20220818

REACTIONS (2)
  - Hypersensitivity [Recovered/Resolved]
  - Hepatic function abnormal [Recovering/Resolving]

NARRATIVE: CASE EVENT DATE: 20220815
